FAERS Safety Report 6909777-4 (Version None)
Quarter: 2010Q3

REPORT INFORMATION
  Report Type: 
  Country: None (occurrence: None)
  Receive Date: 20100806
  Receipt Date: 20100728
  Transmission Date: 20110219
  Serious: Yes (Other)
  Sender: FDA-Public Use
  Company Number: US-BIOGENIDEC-2010BI026001

PATIENT
  Sex: Female

DRUGS (3)
  1. AVONEX [Suspect]
     Indication: MULTIPLE SCLEROSIS
     Route: 030
     Dates: start: 20000103, end: 20090105
  2. AVONEX [Suspect]
     Route: 030
     Dates: start: 20100727
  3. BETASERON [Concomitant]

REACTIONS (3)
  - CONVULSION [None]
  - HYSTERECTOMY [None]
  - THROMBOSIS [None]
